FAERS Safety Report 15015925 (Version 1)
Quarter: 2018Q2

REPORT INFORMATION
  Report Type: Spontaneous
  Country: US (occurrence: US)
  Receive Date: 20180615
  Receipt Date: 20180615
  Transmission Date: 20180711
  Serious: No
  Sender: FDA-Public Use
  Company Number: US-SA-2018SA157748

PATIENT
  Sex: Female
  Weight: 120 kg

DRUGS (1)
  1. AUBAGIO [Suspect]
     Active Substance: TERIFLUNOMIDE
     Indication: MULTIPLE SCLEROSIS
     Dosage: 7 MG, QOD
     Route: 048
     Dates: start: 20160503

REACTIONS (3)
  - Fatigue [Unknown]
  - Paraesthesia [Unknown]
  - Pain in extremity [Unknown]
